FAERS Safety Report 10888958 (Version 4)
Quarter: 2015Q2

REPORT INFORMATION
  Report Type: Spontaneous
  Country: GB (occurrence: GB)
  Receive Date: 20150305
  Receipt Date: 20150408
  Transmission Date: 20150821
  Serious: Yes (Hospitalization, Other)
  Sender: FDA-Public Use
  Company Number: PHHY2015GB024789

PATIENT
  Age: 72 Year
  Sex: Male

DRUGS (7)
  1. AMANTADINE [Suspect]
     Active Substance: AMANTADINE
     Dosage: UNK
     Route: 065
  2. APOMORPHINE [Suspect]
     Active Substance: APOMORPHINE
     Indication: PRODUCT USED FOR UNKNOWN INDICATION
     Dosage: 84 MG (3.5 MG/HOUR DAY) AND 60 MG (2.5 MG/HOUR,NIGHT) FOR 3 YEARS
     Route: 065
     Dates: start: 2012
  3. STALEVO [Suspect]
     Active Substance: CARBIDOPA\ENTACAPONE\LEVODOPA
     Indication: PRODUCT USED FOR UNKNOWN INDICATION
     Dosage: 150 MG, 5QD
     Route: 065
  4. FINASTERIDE. [Suspect]
     Active Substance: FINASTERIDE
     Indication: PRODUCT USED FOR UNKNOWN INDICATION
     Dosage: 5 MG, QD
     Route: 065
  5. ALFUZOSIN [Suspect]
     Active Substance: ALFUZOSIN
     Indication: PRODUCT USED FOR UNKNOWN INDICATION
     Dosage: 10 MG, QD
     Route: 065
  6. MIRTAZAPINE. [Suspect]
     Active Substance: MIRTAZAPINE
     Indication: PRODUCT USED FOR UNKNOWN INDICATION
     Dosage: 30 MG, QD (EVENING)
     Route: 065
  7. AMANTADINE [Suspect]
     Active Substance: AMANTADINE
     Indication: PRODUCT USED FOR UNKNOWN INDICATION
     Dosage: 200/100 MG, QD
     Route: 065

REACTIONS (12)
  - Illusion [Unknown]
  - Depressed mood [Unknown]
  - On and off phenomenon [Unknown]
  - Pelvic fracture [Unknown]
  - Oral discomfort [Not Recovered/Not Resolved]
  - Hallucination, visual [Unknown]
  - Soft tissue haemorrhage [Unknown]
  - Soft tissue mass [Unknown]
  - Fall [Unknown]
  - Sensory disturbance [Unknown]
  - Nasal discomfort [Unknown]
  - Rash [Unknown]
